FAERS Safety Report 4913592-0 (Version None)
Quarter: 2006Q1

REPORT INFORMATION
  Report Type: 
  Country: None (occurrence: None)
  Receive Date: 20060214
  Receipt Date: 20060214
  Transmission Date: 20060701
  Serious: Yes (Other)
  Sender: FDA-Public Use
  Company Number: None

PATIENT
  Sex: Male
  Weight: 90 kg

DRUGS (8)
  1. QUETIAPINE 100 MG [Suspect]
     Indication: HYPOTHYROIDISM
     Dosage: 100 MG QHS PO
     Route: 048
     Dates: start: 20040510, end: 20060213
  2. OMEPRAZOLE [Concomitant]
  3. SYNTHROID [Concomitant]
  4. VISTARIL [Concomitant]
  5. CELEXA [Concomitant]
  6. MOTRIN [Concomitant]
  7. ATENOLOL [Concomitant]
  8. COMBIVENT [Concomitant]

REACTIONS (1)
  - HYPOTHYROIDISM [None]
